FAERS Safety Report 10065035 (Version 1)
Quarter: 2014Q2

REPORT INFORMATION
  Report Type: Spontaneous
  Country: US (occurrence: None)
  Receive Date: 20140407
  Receipt Date: 20140407
  Transmission Date: 20141212
  Serious: Yes (Hospitalization)
  Sender: FDA-Public Use
  Company Number: None

PATIENT
  Age: 78 Year
  Sex: Male
  Weight: 71.1 kg

DRUGS (2)
  1. WARFARIN [Suspect]
     Indication: ATRIAL FIBRILLATION
     Route: 048
     Dates: start: 20131023, end: 20140317
  2. CLOPIDOGREL [Suspect]
     Route: 048
     Dates: start: 20041102, end: 20140323

REACTIONS (8)
  - Syncope [None]
  - Facial bones fracture [None]
  - Head injury [None]
  - Fall [None]
  - Contusion [None]
  - Haemorrhage intracranial [None]
  - Anaemia [None]
  - International normalised ratio increased [None]
